FAERS Safety Report 5357876-3 (Version None)
Quarter: 2007Q2

REPORT INFORMATION
  Report Type: 
  Country: None (occurrence: None)
  Receive Date: 20070530
  Receipt Date: 20070111
  Transmission Date: 20071010
  Serious: Yes (Other)
  Sender: FDA-Public Use
  Company Number: US200701002441

PATIENT
  Age: 38 Year
  Sex: Male
  Weight: 172.3 kg

DRUGS (2)
  1. ZYPREXA [Suspect]
     Dosage: 20 MG, DAILY (1/D), ORAL
     Route: 048
  2. LEXAPRO  /USA/(ESCITALOPRAM) [Concomitant]

REACTIONS (3)
  - DIABETES MELLITUS [None]
  - PAIN IN EXTREMITY [None]
  - WEIGHT INCREASED [None]
